FAERS Safety Report 16155590 (Version 3)
Quarter: 2019Q2

REPORT INFORMATION
  Report Type: Report from Study
  Country: AU (occurrence: AU)
  Receive Date: 20190404
  Receipt Date: 20190624
  Transmission Date: 20190711
  Serious: Yes (Other)
  Sender: FDA-Public Use
  Company Number: AU-SUN PHARMACEUTICAL INDUSTRIES LTD-2018US-181496

PATIENT
  Sex: Female

DRUGS (2)
  1. SONIDEGIB [Suspect]
     Active Substance: SONIDEGIB
     Indication: TRIPLE NEGATIVE BREAST CANCER
     Dosage: 400 MILLIGRAM, QD
     Route: 048
  2. DOCETAXEL. [Suspect]
     Active Substance: DOCETAXEL
     Indication: TRIPLE NEGATIVE BREAST CANCER
     Dosage: 75 MG/M2, ON DAY 1 (21-DAY CYCLES)
     Route: 042

REACTIONS (3)
  - Off label use [Unknown]
  - Triple negative breast cancer [Unknown]
  - Malignant neoplasm progression [Unknown]
